FAERS Safety Report 8328856-0 (Version None)
Quarter: 2012Q2

REPORT INFORMATION
  Report Type: 
  Country: None (occurrence: None)
  Receive Date: 20120502
  Receipt Date: 20100913
  Transmission Date: 20120825
  Serious: No
  Sender: FDA-Public Use
  Company Number: US-TEVA-2010004923

PATIENT
  Sex: Female
  Weight: 62.652 kg

DRUGS (8)
  1. SYNTHROID [Concomitant]
  2. XYZAL [Concomitant]
  3. BIRTH CONTROL PILLS [Concomitant]
  4. ALLEGRA [Concomitant]
  5. NUVIGIL [Suspect]
     Indication: SOMNOLENCE
     Dosage: 150 MILLIGRAM;
     Route: 002
     Dates: start: 20100810, end: 20100801
  6. WELLBUTRIN [Concomitant]
  7. BUSPAR [Concomitant]
  8. KEPPRA [Concomitant]
     Dates: start: 20070101

REACTIONS (1)
  - RASH [None]
